FAERS Safety Report 7444805-1 (Version None)
Quarter: 2011Q2

REPORT INFORMATION
  Report Type: 
  Country: None (occurrence: None)
  Receive Date: 20110427
  Receipt Date: 20110427
  Transmission Date: 20111010
  Serious: Yes (Hospitalization)
  Sender: FDA-Public Use
  Company Number: None

PATIENT
  Age: 73 Year
  Sex: Male
  Weight: 83 kg

DRUGS (1)
  1. METFORMIN HCL [Suspect]
     Dosage: 500 MG EVERY DAY PO
     Route: 048
     Dates: end: 20101006

REACTIONS (2)
  - SYNCOPE [None]
  - HYPOGLYCAEMIA [None]
